FAERS Safety Report 8766749 (Version 2)
Quarter: 2012Q4

REPORT INFORMATION
  Report Type: 
  Country: JP (occurrence: JP)
  Receive Date: 20120904
  Receipt Date: 20120904
  Transmission Date: 20130627
  Serious: Yes (Other)
  Sender: FDA-Public Use
  Company Number: JP-JNJFOC-20120713915

PATIENT
  Age: 8 None
  Sex: Female

DRUGS (9)
  1. TRAMCET [Suspect]
     Indication: PAIN
     Dosage: 1 per 2 day
     Route: 048
  2. TRAMCET [Suspect]
     Indication: PAIN
     Dosage: 1 per 2 days
     Route: 048
  3. TRAMCET [Suspect]
     Indication: PAIN
     Dosage: 4 tablets per day
     Route: 048
  4. TRAMCET [Suspect]
     Indication: PAIN
     Dosage: 1 tablet per day (oncedaily)
     Route: 048
  5. TRAMCET [Suspect]
     Indication: PAIN
     Dosage: 2 tablets per day (twice daily) for 2 months
     Route: 048
     Dates: start: 20120420
  6. METHYLCOBALAMIN [Suspect]
     Indication: PRODUCT USED FOR UNKNOWN INDICATION
     Route: 065
  7. BONALON [Suspect]
     Indication: PRODUCT USED FOR UNKNOWN INDICATION
     Route: 065
  8. THYRADIN [Suspect]
     Indication: PRODUCT USED FOR UNKNOWN INDICATION
     Route: 065
  9. KLARICID [Suspect]
     Indication: PRODUCT USED FOR UNKNOWN INDICATION
     Route: 065

REACTIONS (4)
  - Abdominal pain upper [Not Recovered/Not Resolved]
  - Gastrointestinal disorder [Not Recovered/Not Resolved]
  - Diarrhoea [Not Recovered/Not Resolved]
  - Inappropriate schedule of drug administration [Unknown]
